FAERS Safety Report 4892610-2 (Version None)
Quarter: 2006Q1

REPORT INFORMATION
  Report Type: 
  Country: None (occurrence: None)
  Receive Date: 20060125
  Receipt Date: 20060125
  Transmission Date: 20060701
  Serious: Yes (Hospitalization)
  Sender: FDA-Public Use
  Company Number: None

PATIENT
  Age: 60 Year
  Sex: Male
  Weight: 127.5 kg

DRUGS (11)
  1. ROSIGLITAZONE [Suspect]
     Indication: DIABETES MELLITUS NON-INSULIN-DEPENDENT
     Dosage: 2 MG QD PO
     Route: 048
     Dates: start: 20051107, end: 20060104
  2. NAPROXEN [Concomitant]
  3. FLUOXETINE HCL [Concomitant]
  4. METHOTREXATE NA [Concomitant]
  5. ATENOLOL [Concomitant]
  6. ATENOLOL [Concomitant]
  7. SIMVASTATIN [Concomitant]
  8. FOSINOPRIL NA [Concomitant]
  9. SULFASALAZINE [Concomitant]
  10. BUSPIRONE HCL [Concomitant]
  11. INFLIXIMAB [Concomitant]

REACTIONS (1)
  - CARDIAC FAILURE CONGESTIVE [None]
